FAERS Safety Report 8070231-0 (Version None)
Quarter: 2012Q1

REPORT INFORMATION
  Report Type: 
  Country: None (occurrence: None)
  Receive Date: 20120125
  Receipt Date: 20120118
  Transmission Date: 20120608
  Serious: Yes (Other)
  Sender: FDA-Public Use
  Company Number: CA-ROCHE-776779

PATIENT
  Sex: Male
  Weight: 90.8 kg

DRUGS (14)
  1. BENADRYL [Concomitant]
     Route: 048
     Dates: start: 20110622, end: 20110622
  2. PANTOPRAZOLE SODIUM [Concomitant]
  3. ACETAMINOPHEN [Concomitant]
     Route: 048
     Dates: start: 20120105, end: 20120105
  4. SOLU-MEDROL [Concomitant]
     Route: 042
     Dates: start: 20110622, end: 20110622
  5. SOLU-MEDROL [Concomitant]
     Route: 042
     Dates: start: 20120105, end: 20120105
  6. ACETAMINOPHEN [Concomitant]
     Indication: PREMEDICATION
     Route: 048
     Dates: start: 20120105, end: 20120105
  7. AVASTIN [Suspect]
     Route: 042
     Dates: start: 20110427, end: 20120105
  8. DECADRON [Concomitant]
  9. AVASTIN [Suspect]
     Indication: GLIOBLASTOMA
     Dosage: INFUSION, DOSE, FORM AND FREQUENCY UNKNOWN
     Route: 042
  10. ACETAMINOPHEN [Concomitant]
     Indication: PREMEDICATION
     Route: 048
     Dates: start: 20110427, end: 20110513
  11. SOLU-MEDROL [Concomitant]
     Indication: PREMEDICATION
     Route: 042
     Dates: start: 20110427, end: 20110513
  12. METHYLPREDNISOLONE [Concomitant]
     Indication: PREMEDICATION
     Route: 042
     Dates: start: 20120105, end: 20120105
  13. BENADRYL [Concomitant]
     Indication: PREMEDICATION
     Route: 048
     Dates: start: 20110427, end: 20110513
  14. ACETAMINOPHEN [Concomitant]
     Dosage: FREQUENCY:ONCE
     Route: 048
     Dates: start: 20110622, end: 20110622

REACTIONS (2)
  - DISEASE PROGRESSION [None]
  - HAEMOPTYSIS [None]
